FAERS Safety Report 4362438-0 (Version None)
Quarter: 2004Q2

REPORT INFORMATION
  Report Type: 
  Country: None (occurrence: None)
  Receive Date: 20040518
  Receipt Date: 20040505
  Transmission Date: 20050107
  Serious: Yes (Other)
  Sender: FDA-Public Use
  Company Number: HQWYE817911MAY04

PATIENT
  Age: 26 Year
  Sex: Female
  Weight: 99.88 kg

DRUGS (1)
  1. ALAVERT [Suspect]
     Indication: HYPERSENSITIVITY
     Dosage: 1 TABLET DAILY, ORAL
     Route: 048
     Dates: start: 20040426, end: 20040502

REACTIONS (1)
  - DRUG HYPERSENSITIVITY [None]
